FAERS Safety Report 10301966 (Version 1)
Quarter: 2014Q3

REPORT INFORMATION
  Report Type: Spontaneous
  Country: US (occurrence: None)
  Receive Date: 20140709
  Receipt Date: 20140709
  Transmission Date: 20150326
  Serious: Yes (Hospitalization)
  Sender: FDA-Public Use
  Company Number: None

PATIENT
  Age: 58 Year
  Sex: Female
  Weight: 74.39 kg

DRUGS (14)
  1. VELCADE [Concomitant]
     Active Substance: BORTEZOMIB
  2. ATIVAN [Concomitant]
     Active Substance: LORAZEPAM
  3. MIRALAX [Concomitant]
     Active Substance: POLYETHYLENE GLYCOL 3350
  4. OXYCODONE [Concomitant]
     Active Substance: OXYCODONE
  5. ZOMETA [Concomitant]
     Active Substance: ZOLEDRONIC ACID
  6. PROTONIX [Concomitant]
     Active Substance: PANTOPRAZOLE SODIUM
  7. DEXAMETHASONE. [Concomitant]
     Active Substance: DEXAMETHASONE
  8. ZOFRAN [Concomitant]
     Active Substance: ONDANSETRON HYDROCHLORIDE
  9. COLACE [Concomitant]
     Active Substance: DOCUSATE SODIUM
  10. LIDODERM [Concomitant]
     Active Substance: LIDOCAINE
  11. MS CONTIN [Concomitant]
     Active Substance: MORPHINE SULFATE
  12. REVLIMID [Suspect]
     Active Substance: LENALIDOMIDE
     Indication: PLASMA CELL MYELOMA
     Dosage: 25MG, D1-D14, ORAL
     Route: 048
     Dates: start: 20131114, end: 20140417
  13. DOXEPIN [Concomitant]
     Active Substance: DOXEPIN
  14. CELEXA [Concomitant]
     Active Substance: CITALOPRAM HYDROBROMIDE

REACTIONS (1)
  - Neutropenia [None]

NARRATIVE: CASE EVENT DATE: 20121226
